FAERS Safety Report 25981847 (Version 2)
Quarter: 2025Q4

REPORT INFORMATION
  Report Type: Spontaneous
  Country: US (occurrence: US)
  Receive Date: 20251031
  Receipt Date: 20251225
  Transmission Date: 20260117
  Serious: No
  Sender: ELI LILLY AND COMPANY
  Company Number: US-ELI_LILLY_AND_COMPANY-US202510028930

PATIENT
  Sex: Female
  Weight: 90.703 kg

DRUGS (1)
  1. OMVOH [Suspect]
     Active Substance: MIRIKIZUMAB-MRKZ
     Indication: Inflammatory bowel disease
     Dosage: 300 MG, UNKNOWN
     Route: 042
     Dates: start: 20250509

REACTIONS (1)
  - Off label use [Unknown]
